FAERS Safety Report 4563738-1 (Version None)
Quarter: 2005Q1

REPORT INFORMATION
  Report Type: 
  Country: None (occurrence: None)
  Receive Date: 20050112
  Receipt Date: 20050112
  Transmission Date: 20050727
  Serious: Yes (Hospitalization)
  Sender: FDA-Public Use
  Company Number: None

PATIENT
  Age: 14 Year
  Sex: Male

DRUGS (2)
  1. RITALIN [Suspect]
     Indication: ATTENTION DEFICIT/HYPERACTIVITY DISORDER
     Dosage: 20 MG SR  2 TABS DAILY
     Route: 048
  2. RITALIN [Suspect]
     Indication: BIPOLAR DISORDER
     Dosage: 20 MG SR  2 TABS DAILY
     Route: 048

REACTIONS (1)
  - DRUG INEFFECTIVE [None]
